FAERS Safety Report 8606017-5 (Version None)
Quarter: 2012Q3

REPORT INFORMATION
  Report Type: 
  Country: None (occurrence: None)
  Receive Date: 20120820
  Receipt Date: 20120813
  Transmission Date: 20120928
  Serious: Yes (Other)
  Sender: FDA-Public Use
  Company Number: US-TEVA-353575USA

PATIENT
  Sex: Male

DRUGS (2)
  1. OXYCODONE HCL [Concomitant]
  2. FENTORA [Suspect]
     Indication: BRAIN NEOPLASM MALIGNANT
     Route: 002

REACTIONS (5)
  - CONVULSION [None]
  - BRADYPHRENIA [None]
  - ROAD TRAFFIC ACCIDENT [None]
  - GAIT DISTURBANCE [None]
  - MUSCULAR WEAKNESS [None]
